FAERS Safety Report 19624288 (Version 1)
Quarter: 2021Q3

REPORT INFORMATION
  Report Type: Spontaneous
  Country: US (occurrence: US)
  Receive Date: 20210729
  Receipt Date: 20210729
  Transmission Date: 20211014
  Serious: No
  Sender: FDA-Public Use
  Company Number: US-TEVA-2021-US-1936797

PATIENT
  Age: 58 Year
  Sex: Female

DRUGS (1)
  1. FORMOTEROL FUMARATE TEVA [Suspect]
     Active Substance: FORMOTEROL FUMARATE
     Dosage: 20 MCG / 2 ML
     Route: 065
     Dates: start: 2021

REACTIONS (3)
  - Burning sensation [Unknown]
  - Product substitution issue [Unknown]
  - Drug ineffective [Unknown]

NARRATIVE: CASE EVENT DATE: 2021
